FAERS Safety Report 6739086-8 (Version None)
Quarter: 2010Q2

REPORT INFORMATION
  Report Type: 
  Country: None (occurrence: None)
  Receive Date: 20100525
  Receipt Date: 20100518
  Transmission Date: 20101027
  Serious: Yes (Hospitalization)
  Sender: FDA-Public Use
  Company Number: US-BIOGENIDEC-2010BI016655

PATIENT
  Age: 57 Year
  Sex: Female
  Weight: 120 kg

DRUGS (2)
  1. TYSABRI [Suspect]
     Indication: MULTIPLE SCLEROSIS
     Route: 042
     Dates: start: 20100326
  2. PROTONIX [Concomitant]
     Indication: BARRETT'S OESOPHAGUS
     Dates: start: 20040101

REACTIONS (7)
  - BALANCE DISORDER [None]
  - CHILLS [None]
  - COMPRESSION FRACTURE [None]
  - FALL [None]
  - FATIGUE [None]
  - MOBILITY DECREASED [None]
  - MYALGIA [None]
